FAERS Safety Report 8307820-1 (Version None)
Quarter: 2012Q2

REPORT INFORMATION
  Report Type: 
  Country: None (occurrence: None)
  Receive Date: 20120424
  Receipt Date: 20120416
  Transmission Date: 20120825
  Serious: Yes (Other)
  Sender: FDA-Public Use
  Company Number: GB-TEVA-326086ISR

PATIENT
  Age: 75 Year
  Sex: Male

DRUGS (12)
  1. FUROSEMIDE [Suspect]
     Indication: PRODUCT USED FOR UNKNOWN INDICATION
  2. ALBUTEROL [Suspect]
     Indication: PRODUCT USED FOR UNKNOWN INDICATION
     Route: 065
  3. ATORVASTATIN [Suspect]
     Indication: PRODUCT USED FOR UNKNOWN INDICATION
     Route: 065
  4. SYMBICORT [Concomitant]
  5. WARFARIN SODIUM [Suspect]
     Indication: ATRIAL FIBRILLATION
     Route: 065
  6. PREDNISOLONE [Suspect]
     Indication: CHRONIC OBSTRUCTIVE PULMONARY DISEASE
     Route: 065
  7. CYSTEINE [Suspect]
     Indication: PRODUCT USED FOR UNKNOWN INDICATION
     Route: 065
  8. VERAPAMIL [Suspect]
     Indication: ATRIAL FIBRILLATION
     Route: 065
  9. RAMIPRIL [Suspect]
     Indication: PRODUCT USED FOR UNKNOWN INDICATION
     Dosage: 5 MILLIGRAM;
  10. FORMOTEROL FUMARATE [Suspect]
     Indication: PRODUCT USED FOR UNKNOWN INDICATION
     Route: 065
  11. SPIRIVA [Concomitant]
  12. METFORMIN HCL [Suspect]
     Indication: PRODUCT USED FOR UNKNOWN INDICATION
     Route: 065

REACTIONS (1)
  - HALLUCINATION [None]
